FAERS Safety Report 4539438-0 (Version None)
Quarter: 2004Q4

REPORT INFORMATION
  Report Type: 
  Country: None (occurrence: None)
  Receive Date: 20041223
  Receipt Date: 20041208
  Transmission Date: 20050328
  Serious: Yes (Death)
  Sender: FDA-Public Use
  Company Number: US-2004-036463

PATIENT
  Age: 35 Year
  Sex: Male
  Weight: 100.6 kg

DRUGS (16)
  1. CAMPATH [Suspect]
     Indication: STEM CELL TRANSPLANT
     Dosage: 10 MG, 1 DOSE, INTRAVENOUS
     Route: 042
     Dates: start: 20041105, end: 20041105
  2. FLUDARA [Suspect]
     Indication: STEM CELL TRANSPLANT
     Dosage: 60 MG, 1X/DAY, INTRAVENOUS
     Route: 042
     Dates: start: 20041104, end: 20041105
  3. CYTOXAN [Suspect]
     Indication: STEM CELL TRANSPLANT
     Dosage: 1000 MG, 1X/DAY, INTRAVENOUS
     Route: 042
     Dates: start: 20041104, end: 20041105
  4. DIPHENDRAMINE (DIPHENHYDRAMINE0 [Concomitant]
  5. ACETAMINOPHEN [Concomitant]
  6. ZOFRAN (NDANSETRON HYDROCHLORIDE) [Concomitant]
  7. ATIVAN [Concomitant]
  8. COMPAZINE [Concomitant]
  9. HYDROCORTISONE [Concomitant]
  10. SEPTRA DS [Concomitant]
  11. CEFTRIAXONE [Concomitant]
  12. VERAPAMIL [Concomitant]
  13. METOPROLOL TARTRATE [Concomitant]
  14. GLUCOPHAGE [Concomitant]
  15. GLUCOTROL [Concomitant]
  16. HYDROCODONE (HYDROCODONE) [Concomitant]

REACTIONS (8)
  - ASTHENIA [None]
  - CARDIAC ARREST [None]
  - CHILLS [None]
  - IDIOSYNCRATIC DRUG REACTION [None]
  - PYREXIA [None]
  - SUDDEN DEATH [None]
  - TACHYPNOEA [None]
  - WHEEZING [None]
